FAERS Safety Report 25606987 (Version 1)
Quarter: 2025Q3

REPORT INFORMATION
  Report Type: Spontaneous
  Country: US (occurrence: None)
  Receive Date: 20250725
  Receipt Date: 20250725
  Transmission Date: 20251020
  Serious: Yes (Hospitalization)
  Sender: FDA-CTU
  Company Number: None

PATIENT
  Age: 67 Year
  Sex: Female
  Weight: 68.4 kg

DRUGS (1)
  1. LITHIUM [Suspect]
     Active Substance: LITHIUM
     Indication: Bipolar disorder
     Dates: start: 20230419, end: 20250527

REACTIONS (4)
  - Chest pain [None]
  - Dizziness [None]
  - Bradycardia [None]
  - Urinary tract infection [None]

NARRATIVE: CASE EVENT DATE: 20250526
